FAERS Safety Report 7574615-6 (Version None)
Quarter: 2011Q2

REPORT INFORMATION
  Report Type: 
  Country: None (occurrence: None)
  Receive Date: 20110627
  Receipt Date: 20110624
  Transmission Date: 20111010
  Serious: Yes (Hospitalization)
  Sender: FDA-Public Use
  Company Number: UA-PFIZER INC-2011102786

PATIENT
  Age: 40 Year
  Sex: Male
  Weight: 84 kg

DRUGS (1)
  1. MEDROL [Suspect]
     Indication: ANKYLOSING SPONDYLITIS
     Dosage: 16 MG, 1X/DAY
     Route: 048
     Dates: start: 20110427

REACTIONS (3)
  - TABLET PHYSICAL ISSUE [None]
  - ANKYLOSING SPONDYLITIS [None]
  - CONDITION AGGRAVATED [None]
